FAERS Safety Report 9729528 (Version 2)
Quarter: 2013Q4

REPORT INFORMATION
  Report Type: Spontaneous
  Country: US (occurrence: US)
  Receive Date: 20131204
  Receipt Date: 20131204
  Transmission Date: 20140711
  Serious: No
  Sender: FDA-Public Use
  Company Number: US-GILEAD-2009-0021617

PATIENT
  Age: 82 Year
  Sex: Female
  Weight: 81.65 kg

DRUGS (20)
  1. LETAIRIS [Suspect]
     Indication: PULMONARY ARTERIAL HYPERTENSION
     Route: 048
     Dates: start: 20090416
  2. DILTIA XT [Concomitant]
  3. ATENOLOL [Concomitant]
  4. SIMVASTATIN [Concomitant]
  5. LIPITOR [Concomitant]
  6. CARDURA [Concomitant]
  7. BENICAR HCT [Concomitant]
  8. HYDROCHLOROTHIAZIDE [Concomitant]
  9. ECOTRIN [Concomitant]
  10. LASIX [Concomitant]
  11. HIDEAWAY OXYGEN SYSTEM [Concomitant]
  12. ACETYLCYSTEINE [Concomitant]
  13. PREDNISONE [Concomitant]
  14. IMURAN [Concomitant]
  15. TYLENOL 8 HOUR [Concomitant]
  16. FOSAMAX [Concomitant]
  17. CALTRATE [Concomitant]
  18. CALCIUM WITH VITAMIN D [Concomitant]
  19. VITAMIN C [Concomitant]
  20. DAILY MULTIVITAMIN [Concomitant]

REACTIONS (4)
  - Malaise [Unknown]
  - Dyspnoea [Recovered/Resolved]
  - Oedema peripheral [Recovered/Resolved]
  - Swelling [Unknown]
